FAERS Safety Report 5945986-9 (Version None)
Quarter: 2008Q4

REPORT INFORMATION
  Report Type: 
  Country: None (occurrence: None)
  Receive Date: 20081106
  Receipt Date: 20081028
  Transmission Date: 20090506
  Serious: Yes (Hospitalization, Other)
  Sender: FDA-Public Use
  Company Number: OMPQ-NO-0810S-0969

PATIENT
  Age: 81 Year
  Sex: Male
  Weight: 40 kg

DRUGS (1)
  1. OMNIPAQUE 140 [Suspect]
     Indication: DRUG USE FOR UNKNOWN INDICATION
     Dosage: 80 ML, SINGLE DOSE, I.V.
     Route: 042
     Dates: start: 20081028, end: 20081028

REACTIONS (6)
  - ANGIOPATHY [None]
  - BRADYCARDIA [None]
  - CARDIAC ARREST [None]
  - CONVULSION [None]
  - RESPIRATORY ARREST [None]
  - SHOCK [None]
